FAERS Safety Report 9450694 (Version 1)
Quarter: 2013Q3

REPORT INFORMATION
  Report Type: Report from Study
  Country: FR (occurrence: FR)
  Receive Date: 20130809
  Receipt Date: 20130809
  Transmission Date: 20140515
  Serious: Yes (Other)
  Sender: FDA-Public Use
  Company Number: FR-GENZYME-CAMP-1002867

PATIENT
  Age: 64 Year
  Sex: Female

DRUGS (3)
  1. CAMPATH [Suspect]
     Indication: CHRONIC LYMPHOCYTIC LEUKAEMIA
     Dosage: 10 MG, 3X/W
     Route: 058
     Dates: start: 20120604, end: 20120713
  2. CAMPATH [Suspect]
     Dosage: 10 MG, 3X/W
     Route: 058
     Dates: start: 20120924, end: 20121006
  3. CAMPATH [Suspect]
     Dosage: 10 MG, 3X/W
     Route: 058
     Dates: start: 20121022, end: 20121119

REACTIONS (1)
  - Bronchopneumopathy [Recovered/Resolved]
